FAERS Safety Report 22589338 (Version 1)
Quarter: 2023Q2

REPORT INFORMATION
  Report Type: Spontaneous
  Country: BR (occurrence: None)
  Receive Date: 20230612
  Receipt Date: 20230612
  Transmission Date: 20230721
  Serious: Yes (Hospitalization)
  Sender: FDA-Public Use
  Company Number: BR-ROCHE-3363702

PATIENT
  Sex: Female

DRUGS (2)
  1. GAZYVA [Suspect]
     Active Substance: OBINUTUZUMAB
     Indication: Chronic lymphocytic leukaemia
     Dosage: 40 DROPS
     Route: 042
  2. ACETAMINOPHEN [Concomitant]
     Active Substance: ACETAMINOPHEN
     Dosage: 40 DROPS

REACTIONS (6)
  - Nausea [Unknown]
  - Vomiting [Unknown]
  - Flushing [Unknown]
  - Tremor [Unknown]
  - Blood pressure fluctuation [Unknown]
  - Heart rate abnormal [Unknown]
